FAERS Safety Report 10069430 (Version 2)
Quarter: 2014Q2

REPORT INFORMATION
  Report Type: Spontaneous
  Country: BE (occurrence: BE)
  Receive Date: 20140410
  Receipt Date: 20140429
  Transmission Date: 20141212
  Serious: Yes (Disabling, Other)
  Sender: FDA-Public Use
  Company Number: BE-AMGEN-BELSP2014025315

PATIENT
  Age: 72 Year
  Sex: Male
  Weight: 80 kg

DRUGS (3)
  1. XGEVA [Suspect]
     Indication: PROPHYLAXIS
     Dosage: 120 MG, QMO
     Route: 058
     Dates: start: 201310, end: 201401
  2. AVASTIN                            /01555201/ [Suspect]
     Indication: BREAST CANCER METASTATIC
     Dosage: 10 MG/KG, UNK
     Route: 042
     Dates: start: 20130327, end: 20140114
  3. PACLITAXEL [Concomitant]
     Indication: NEOPLASM
     Dosage: 90 MG/M2, Q2WK
     Route: 042
     Dates: start: 20130327, end: 20140114

REACTIONS (2)
  - Weight decreased [Recovering/Resolving]
  - Osteonecrosis of jaw [Recovering/Resolving]
